FAERS Safety Report 15479352 (Version 1)
Quarter: 2018Q4

REPORT INFORMATION
  Report Type: Spontaneous
  Country: GT (occurrence: GT)
  Receive Date: 20181009
  Receipt Date: 20181009
  Transmission Date: 20190205
  Serious: Yes (Other)
  Sender: FDA-Public Use
  Company Number: GT-BAYER-2018-186662

PATIENT
  Age: 32 Year
  Sex: Female

DRUGS (1)
  1. YASMIN [Suspect]
     Active Substance: DROSPIRENONE\ETHINYL ESTRADIOL
     Dosage: UNK
     Route: 048

REACTIONS (9)
  - Scleroderma [None]
  - Drug intolerance [None]
  - Dizziness [None]
  - Infertility female [Not Recovered/Not Resolved]
  - Tachycardia [None]
  - Vaginal discharge [None]
  - Fatigue [None]
  - Telangiectasia [None]
  - Vomiting [None]
